FAERS Safety Report 9095221 (Version 1)
Quarter: 2013Q1

REPORT INFORMATION
  Report Type: Spontaneous
  Country: IT (occurrence: None)
  Receive Date: 20130122
  Receipt Date: 20130122
  Transmission Date: 20140127
  Serious: Yes (Hospitalization)
  Sender: FDA-Public Use
  Company Number: FK201300105

PATIENT
  Age: 72 Year
  Sex: Male

DRUGS (3)
  1. OXALIPLATIN [Suspect]
     Indication: COLON CANCER METASTATIC
     Dosage: BODY SURFACE, (NOT OTHERWISE SPECIFIED)
     Route: 042
     Dates: start: 20121221, end: 20121221
  2. DEXAMETHASONE PHOSPHATE (DEXAMETHASONE PHOSPHATE) [Concomitant]
  3. ONDANSETRON (ONDANSETRON) [Concomitant]

REACTIONS (2)
  - Anaphylactic shock [None]
  - Respiratory arrest [None]
